FAERS Safety Report 9686998 (Version 1)
Quarter: 2013Q4

REPORT INFORMATION
  Report Type: Spontaneous
  Country: US (occurrence: US)
  Receive Date: 20131113
  Receipt Date: 20131113
  Transmission Date: 20140711
  Serious: Yes (Other)
  Sender: FDA-Public Use
  Company Number: PHHY2013US126325

PATIENT
  Age: 11 Month
  Sex: Male

DRUGS (1)
  1. LIDOCAINE [Suspect]
     Indication: INJECTION SITE PAIN
     Dosage: 10 ML, UNK

REACTIONS (3)
  - Toxicity to various agents [Unknown]
  - Grand mal convulsion [Recovered/Resolved]
  - Accidental overdose [Unknown]
